FAERS Safety Report 7623797-6 (Version None)
Quarter: 2011Q3

REPORT INFORMATION
  Report Type: 
  Country: None (occurrence: None)
  Receive Date: 20110720
  Receipt Date: 20110705
  Transmission Date: 20111222
  Serious: Yes (Hospitalization)
  Sender: FDA-Public Use
  Company Number: BR-SANOFI-AVENTIS-2011SA044346

PATIENT
  Age: 74 Year
  Sex: Male
  Weight: 69 kg

DRUGS (6)
  1. DOXAZOSIN MESYLATE [Concomitant]
     Route: 065
  2. CARVEDILOL [Concomitant]
     Route: 065
  3. THIAZIDES [Concomitant]
     Route: 065
  4. WARFARIN SODIUM [Concomitant]
     Route: 065
  5. SIMVASTATIN [Concomitant]
     Route: 065
  6. DRONEDARONE HCL [Suspect]
     Indication: ATRIAL FIBRILLATION
     Route: 048
     Dates: start: 20110304

REACTIONS (8)
  - LUNG DISORDER [None]
  - ALANINE AMINOTRANSFERASE INCREASED [None]
  - BRONCHOSPASM [None]
  - PLEURAL EFFUSION [None]
  - PNEUMONIA [None]
  - ASPARTATE AMINOTRANSFERASE INCREASED [None]
  - SPUTUM PURULENT [None]
  - HAEMATOMA [None]
